FAERS Safety Report 4362773-6 (Version None)
Quarter: 2004Q2

REPORT INFORMATION
  Report Type: 
  Country: None (occurrence: None)
  Receive Date: 20040518
  Receipt Date: 20040503
  Transmission Date: 20050107
  Serious: Yes (Other)
  Sender: FDA-Public Use
  Company Number: 197142

PATIENT
  Age: 36 Year
  Sex: Female
  Weight: 111.1313 kg

DRUGS (5)
  1. AVONEX [Suspect]
     Indication: MULTIPLE SCLEROSIS
     Dosage: 30 MCG QW IM
     Route: 030
     Dates: start: 20040201
  2. CAPTOPRIL [Concomitant]
  3. TEGRETOL [Concomitant]
  4. AMANTADINE HCL [Concomitant]
  5. PROVIGIL [Concomitant]

REACTIONS (2)
  - HELICOBACTER INFECTION [None]
  - HEPATIC STEATOSIS [None]
